FAERS Safety Report 7691443-1 (Version None)
Quarter: 2011Q3

REPORT INFORMATION
  Report Type: 
  Country: None (occurrence: None)
  Receive Date: 20110818
  Receipt Date: 20110812
  Transmission Date: 20111222
  Serious: Yes (Death, Hospitalization, Other)
  Sender: FDA-Public Use
  Company Number: PHHY2011VN73119

PATIENT
  Sex: Female
  Weight: 51 kg

DRUGS (5)
  1. GLEEVEC [Suspect]
     Dosage: 300 MG, DAILY
     Route: 048
     Dates: end: 20100101
  2. GLEEVEC [Suspect]
     Dosage: 400 MG, DAILY
     Route: 048
  3. GLEEVEC [Suspect]
     Dosage: 400 MG, DAILY
     Route: 048
     Dates: start: 20090301
  4. DIAMICRON [Concomitant]
     Indication: TYPE 2 DIABETES MELLITUS
     Dosage: 80 MG, BID
     Route: 048
     Dates: start: 20090101
  5. MORPHINE [Concomitant]
     Indication: ANALGESIC THERAPY
     Dosage: 20 MG, DAILY
     Route: 030
     Dates: start: 20110505, end: 20110601

REACTIONS (4)
  - ABDOMINAL PAIN [None]
  - HEPATIC HAEMORRHAGE [None]
  - NEOPLASM MALIGNANT [None]
  - NODULE [None]
